FAERS Safety Report 11435788 (Version 1)
Quarter: 2015Q3

REPORT INFORMATION
  Report Type: Spontaneous
  Country: US (occurrence: US)
  Receive Date: 20150821
  Receipt Date: 20150821
  Transmission Date: 20151125
  Serious: No
  Sender: FDA-Public Use
  Company Number: US-ELI_LILLY_AND_COMPANY-US201312009072

PATIENT
  Sex: Female

DRUGS (2)
  1. HUMULIN 70/30 [Suspect]
     Active Substance: INSULIN HUMAN
     Indication: TYPE 1 DIABETES MELLITUS
     Dosage: 25 IU, UNKNOWN
     Route: 065
     Dates: start: 2003
  2. HUMULIN 70/30 [Suspect]
     Active Substance: INSULIN HUMAN
     Dosage: 25 IU, UNKNOWN
     Route: 065
     Dates: start: 2003

REACTIONS (7)
  - Visual acuity reduced [Unknown]
  - Memory impairment [Unknown]
  - Blood glucose increased [Unknown]
  - Hypertension [Unknown]
  - Drug dose omission [Unknown]
  - Dry mouth [Unknown]
  - Expired product administered [Unknown]
